FAERS Safety Report 7137167-0 (Version None)
Quarter: 2010Q4

REPORT INFORMATION
  Report Type: 
  Country: None (occurrence: None)
  Receive Date: 20101206
  Receipt Date: 20070614
  Transmission Date: 20110411
  Serious: Yes (Death)
  Sender: FDA-Public Use
  Company Number: US-ACTELION-A-US2007-14255

PATIENT

DRUGS (5)
  1. ILOPROST INHALATION SOLUTION 5UG US [Suspect]
     Indication: PULMONARY HYPERTENSION
     Dosage: 5 UG, 6-9 X DAY
     Route: 055
     Dates: start: 20061019, end: 20070119
  2. XIFAXAN [Concomitant]
     Indication: DIARRHOEA INFECTIOUS
     Dates: end: 20070119
  3. FUROSEMIDE [Concomitant]
     Indication: CARDIAC FAILURE CONGESTIVE
     Dates: end: 20070119
  4. SPIRONOLACTONE [Concomitant]
     Indication: CARDIAC FAILURE CONGESTIVE
     Dates: end: 20070119
  5. EFFEXOR [Concomitant]
     Indication: DEPRESSION
     Dates: end: 20070119

REACTIONS (1)
  - DEATH [None]
